FAERS Safety Report 25399408 (Version 1)
Quarter: 2025Q2

REPORT INFORMATION
  Report Type: Spontaneous
  Country: US (occurrence: US)
  Receive Date: 20250605
  Receipt Date: 20250605
  Transmission Date: 20250717
  Serious: Yes (Disabling, Other)
  Sender: ABBVIE
  Company Number: US-ABBVIE-6305409

PATIENT
  Age: 52 Year
  Sex: Female

DRUGS (2)
  1. RINVOQ [Suspect]
     Active Substance: UPADACITINIB
     Indication: Rheumatoid arthritis
     Route: 048
     Dates: start: 20220103, end: 202410
  2. RINVOQ [Suspect]
     Active Substance: UPADACITINIB
     Indication: Rheumatoid arthritis
     Route: 048

REACTIONS (9)
  - Pain [Not Recovered/Not Resolved]
  - Joint dislocation [Recovered/Resolved]
  - Foot fracture [Recovered/Resolved]
  - Osteoarthritis [Unknown]
  - Femur fracture [Recovered/Resolved]
  - Sleep disorder [Unknown]
  - Osteoporosis [Unknown]
  - Osteopenia [Unknown]
  - Pain [Not Recovered/Not Resolved]

NARRATIVE: CASE EVENT DATE: 20220103
